FAERS Safety Report 24095699 (Version 1)
Quarter: 2024Q3

REPORT INFORMATION
  Report Type: Report from Study
  Country: AU (occurrence: AU)
  Receive Date: 20240716
  Receipt Date: 20240716
  Transmission Date: 20241016
  Serious: Yes (Death, Other)
  Sender: TEVA
  Company Number: AU-JNJFOC-20231250799

PATIENT
  Age: 59 Year
  Sex: Female

DRUGS (4)
  1. RIBOMUSTIN [Suspect]
     Active Substance: BENDAMUSTINE HYDROCHLORIDE
     Indication: Diffuse large B-cell lymphoma refractory
     Dosage: UNK UNK, CYCLIC (DOSE: 140DAY 2 AND DAY 3 OF POLA-BR REGIMEN, GIVEN EVERY 21 DAYS)
     Route: 042
     Dates: end: 20240623
  2. RITUXIMAB [Concomitant]
     Active Substance: RITUXIMAB
     Indication: Diffuse large B-cell lymphoma refractory
     Dosage: UNK UNK, UNKNOWN FREQ.FORMULATION UNKNOWN
     Route: 065
  3. POLATUZUMAB VEDOTIN [Concomitant]
     Active Substance: POLATUZUMAB VEDOTIN
     Indication: Diffuse large B-cell lymphoma refractory
     Dosage: UNK UNK, UNKNOWN FREQ.FORMULATION UNKNOWN
     Route: 065
  4. GEMCITABINE HYDROCHLORIDE\OXALIPLATIN [Concomitant]
     Active Substance: GEMCITABINE HYDROCHLORIDE\OXALIPLATIN
     Indication: Diffuse large B-cell lymphoma refractory
     Dosage: UNK UNK, UNKNOWN FREQ, FORMULATION UNKNOWN
     Route: 065

REACTIONS (3)
  - Malignant neoplasm progression [Fatal]
  - Diffuse large B-cell lymphoma refractory [Recovered/Resolved]
  - Off label use [Recovered/Resolved]
